FAERS Safety Report 8659595 (Version 3)
Quarter: 2012Q4

REPORT INFORMATION
  Report Type: Spontaneous
  Country: US (occurrence: None)
  Receive Date: 20120621
  Receipt Date: 20120816
  Transmission Date: 20130627
  Serious: Yes (Hospitalization)
  Sender: FDA-Public Use
  Company Number: 2012PROUSA01520

PATIENT
  Age: 68 Year
  Sex: Male
  Weight: 80.3 kg

DRUGS (20)
  1. PROVENGE [Suspect]
     Indication: PROSTATE CANCER METASTATIC
     Dosage: 250 ML, SINGLE, INTRAVENOUS
     Route: 042
     Dates: start: 20120427, end: 20120427
  2. PROVENGE [Suspect]
     Dosage: 250 ML, SINGLE, INTRAVENOUS
     Route: 042
     Dates: start: 20120511, end: 20120511
  3. MEGACE [Concomitant]
  4. COMPAZINE [Concomitant]
  5. DIPHENHYDRAMINE HYDROCHLORIDE [Concomitant]
  6. ACETAMINOPHEN [Concomitant]
  7. TRELSTAR LA (TRIPTORELIN EMBONATE) [Concomitant]
  8. POTASSIUM CHLORIDE [Concomitant]
  9. METOPROLOL SUCCINATE [Concomitant]
  10. LEVOTHYROXINE SODIUM [Concomitant]
  11. LISINOPRIL + HIDROCLOROTIAZIDE (HYDROCHLOROTHIAZIDE, LISINOPRIL) [Concomitant]
  12. FEXOFENADINE HYDROCHLORIDE [Concomitant]
  13. ADVIL [Concomitant]
  14. PEARLS ACIDOPHILUS (BIFIDOBACTERIUM LONGUM, LACTOBACILLUS ACIDOPHILUS) [Concomitant]
  15. LIPITOR [Concomitant]
  16. FLONASE [Concomitant]
  17. ASPIRIN [Concomitant]
  18. METFORMIN HYDROCHLORIDE [Concomitant]
  19. CASODEX [Concomitant]
  20. ZOMETA [Concomitant]

REACTIONS (19)
  - CEREBROVASCULAR ACCIDENT [None]
  - Prostatic specific antigen increased [None]
  - HYPONATRAEMIA [None]
  - PYREXIA [None]
  - JOINT SWELLING [None]
  - WEIGHT DECREASED [None]
  - DECREASED APPETITE [None]
  - ANAEMIA [None]
  - METASTASES TO BONE [None]
  - DISEASE PROGRESSION [None]
  - DEHYDRATION [None]
  - NAUSEA [None]
  - TREMOR [None]
  - MENTAL STATUS CHANGES [None]
  - DYSPNOEA [None]
  - FATIGUE [None]
  - ASTHENIA [None]
  - OEDEMA PERIPHERAL [None]
  - MUSCULAR WEAKNESS [None]
